APPROVED DRUG PRODUCT: EPINEPHRINE
Active Ingredient: EPINEPHRINE
Strength: 1MG/ML (1MG/ML)
Dosage Form/Route: SOLUTION;INTRAMUSCULAR, INTRAVENOUS, SUBCUTANEOUS
Application: N205029 | Product #005
Applicant: BPI LABS LLC
Approved: Mar 4, 2024 | RLD: Yes | RS: Yes | Type: RX